FAERS Safety Report 16350712 (Version 1)
Quarter: 2019Q2

REPORT INFORMATION
  Report Type: Spontaneous
  Country: DK (occurrence: DK)
  Receive Date: 20190524
  Receipt Date: 20190524
  Transmission Date: 20190711
  Serious: Yes (Other)
  Sender: FDA-Public Use
  Company Number: DK-TEVA-2019-DK-1054884

PATIENT
  Age: 66 Year
  Sex: Female

DRUGS (4)
  1. VALACICLOVIR TEVA [Suspect]
     Active Substance: VALACYCLOVIR HYDROCHLORIDE
     Indication: GENITAL HERPES
     Dosage: 1000 MILLIGRAM DAILY; TAKEN PRODUCT THROUGH 25 YEARS
     Route: 048
     Dates: start: 20171017, end: 20171021
  2. VALACICLOVIR TEVA [Suspect]
     Active Substance: VALACYCLOVIR HYDROCHLORIDE
     Dosage: 1000 MILLIGRAM DAILY;
     Route: 048
     Dates: start: 20171202, end: 20171205
  3. VALACICLOVIR TEVA [Suspect]
     Active Substance: VALACYCLOVIR HYDROCHLORIDE
     Dosage: 1000 MILLIGRAM DAILY;
     Route: 048
     Dates: start: 20171110, end: 20171114
  4. VALACICLOVIR TEVA [Suspect]
     Active Substance: VALACYCLOVIR HYDROCHLORIDE
     Route: 048
     Dates: start: 20180103

REACTIONS (9)
  - Tremor [Not Recovered/Not Resolved]
  - Fatigue [Not Recovered/Not Resolved]
  - Dysarthria [Recovered/Resolved]
  - Speech disorder [Recovered/Resolved]
  - Muscular weakness [Recovered/Resolved]
  - Coordination abnormal [Recovered/Resolved]
  - Asthenia [Recovered/Resolved]
  - Restlessness [Recovered/Resolved]
  - Tremor [Recovered/Resolved]

NARRATIVE: CASE EVENT DATE: 201712
